FAERS Safety Report 9056185 (Version 2)
Quarter: 2013Q1

REPORT INFORMATION
  Report Type: Spontaneous
  Country: FR (occurrence: FR)
  Receive Date: 20130131
  Receipt Date: 20130131
  Transmission Date: 20140127
  Serious: Yes (Death, Hospitalization, Other)
  Sender: FDA-Public Use
  Company Number: FR-PFIZER INC-2013038774

PATIENT
  Age: 77 Year
  Sex: Female

DRUGS (12)
  1. CORDARONE [Suspect]
     Indication: PRODUCT USED FOR UNKNOWN INDICATION
     Dosage: 1 DF, DAILY
     Route: 048
     Dates: end: 20121110
  2. CALCIPARINE [Suspect]
     Indication: PRODUCT USED FOR UNKNOWN INDICATION
     Dosage: 0.3 ML, 2X/DAY
     Route: 058
     Dates: start: 20121106, end: 20121109
  3. KARDEGIC [Suspect]
     Indication: PRODUCT USED FOR UNKNOWN INDICATION
     Dosage: 75 MG, DAILY
     Route: 048
     Dates: end: 20121110
  4. PREVISCAN [Suspect]
     Indication: PRODUCT USED FOR UNKNOWN INDICATION
     Dosage: 0.25 MG, DAILY
     Route: 048
     Dates: start: 20121106, end: 20121108
  5. BRILIQUE [Suspect]
     Indication: PRODUCT USED FOR UNKNOWN INDICATION
     Dosage: 90 MG, 2X/DAY
     Route: 048
     Dates: start: 20121029, end: 20121109
  6. LEVOTHYROX [Concomitant]
     Dosage: UNK
  7. LASILIX [Concomitant]
     Dosage: UNK
     Dates: start: 20121029
  8. SERESTA [Concomitant]
     Dosage: UNK
  9. INEXIUM [Concomitant]
     Dosage: UNK
  10. SERETIDE [Concomitant]
     Dosage: UNK
     Dates: end: 20121112
  11. COVERSYL [Concomitant]
     Dosage: UNK
     Dates: end: 20121111
  12. DIFFU K [Concomitant]
     Dosage: UNK
     Dates: end: 20121111

REACTIONS (5)
  - Cerebral haematoma [Fatal]
  - Cardiac failure [Unknown]
  - Coronary artery stenosis [Unknown]
  - International normalised ratio increased [Unknown]
  - Haematoma [Unknown]
